FAERS Safety Report 6918926-3 (Version None)
Quarter: 2010Q3

REPORT INFORMATION
  Report Type: 
  Country: None (occurrence: None)
  Receive Date: 20100811
  Receipt Date: 20100805
  Transmission Date: 20110219
  Serious: Yes (Hospitalization)
  Sender: FDA-Public Use
  Company Number: KR-BRISTOL-MYERS SQUIBB COMPANY-15130677

PATIENT
  Age: 58 Year
  Sex: Male
  Weight: 60 kg

DRUGS (3)
  1. CETUXIMAB [Suspect]
     Indication: GASTROOESOPHAGEAL CANCER
     Dosage: STRENGTH-5MG/ML;INF:6;RECENT INFUSION- 20MAY10;WITHDRAWN ON 01JUN2010
     Route: 042
     Dates: start: 20100415, end: 20100527
  2. CISPLATIN [Suspect]
     Indication: GASTROOESOPHAGEAL CANCER
     Dosage: DAY 1 OF CYCLE;RECENT INFUSION -06MAY10;WITHDRAWN ON 01JUN2010
     Route: 042
     Dates: start: 20100415, end: 20100527
  3. XELODA [Suspect]
     Indication: GASTROOESOPHAGEAL CANCER
     Dosage: DAY 1-15;RECENT DOSE:06MAY2010;WITHDRAWN ON 01JUN2010
     Route: 048
     Dates: start: 20100415, end: 20100527

REACTIONS (1)
  - PULMONARY EMBOLISM [None]
